FAERS Safety Report 17658052 (Version 5)
Quarter: 2020Q3

REPORT INFORMATION
  Report Type: Report from Study
  Country: US (occurrence: US)
  Receive Date: 20200411
  Receipt Date: 20200723
  Transmission Date: 20201102
  Serious: No
  Sender: FDA-Public Use
  Company Number: NVSC2020US097783

PATIENT
  Sex: Male

DRUGS (2)
  1. COSENTYX [Suspect]
     Active Substance: SECUKINUMAB
     Indication: PSORIATIC ARTHROPATHY
     Dosage: 150 MG, Q4W
     Route: 058
  2. COSENTYX [Suspect]
     Active Substance: SECUKINUMAB
     Indication: PROSTATIC SPECIFIC ANTIGEN
     Dosage: 150 MG, QW4
     Route: 058

REACTIONS (5)
  - Nervousness [Recovering/Resolving]
  - Drug ineffective [Recovering/Resolving]
  - Pain [Unknown]
  - Malaise [Recovering/Resolving]
  - Pain in extremity [Recovering/Resolving]
